FAERS Safety Report 10246027 (Version 3)
Quarter: 2014Q3

REPORT INFORMATION
  Report Type: Spontaneous
  Country: US (occurrence: None)
  Receive Date: 20140617
  Receipt Date: 20140725
  Transmission Date: 20150326
  Serious: No
  Sender: FDA-Public Use
  Company Number: 2014-US-007132

PATIENT
  Age: 51 Year
  Sex: Female
  Weight: 68 kg

DRUGS (1)
  1. XYREM [Suspect]
     Active Substance: SODIUM OXYBATE
     Indication: NARCOLEPSY
     Route: 048
     Dates: start: 201306, end: 2014

REACTIONS (6)
  - Spinal fusion surgery [None]
  - Intervertebral disc degeneration [None]
  - Spinal osteoarthritis [None]
  - No adverse event [None]
  - Radiculitis cervical [None]
  - Radiculotomy [None]

NARRATIVE: CASE EVENT DATE: 2014
